FAERS Safety Report 15238436 (Version 1)
Quarter: 2018Q3

REPORT INFORMATION
  Report Type: Spontaneous
  Country: US (occurrence: US)
  Receive Date: 20180710
  Receipt Date: 20180710
  Transmission Date: 20181010
  Serious: No
  Sender: FDA-Public Use
  Company Number: None

PATIENT
  Age: 68 Year
  Sex: Female
  Weight: 72.9 kg

DRUGS (14)
  1. FLUTICASONE PROPIONATE. [Concomitant]
     Active Substance: FLUTICASONE PROPIONATE
  2. MYRBETRIQ [Suspect]
     Active Substance: MIRABEGRON
     Indication: HYPERTONIC BLADDER
     Dosage: ?          QUANTITY:1 TABLET(S);?
     Route: 048
     Dates: start: 20180618
  3. SYNTHROID [Concomitant]
     Active Substance: LEVOTHYROXINE SODIUM
  4. PINEAPPLE + PAPAYA ENZYME [Concomitant]
  5. PROLIA [Concomitant]
     Active Substance: DENOSUMAB
  6. VITAMIN D3 [Concomitant]
     Active Substance: CHOLECALCIFEROL
  7. CALCIUM/MAGNESIUM [Concomitant]
     Active Substance: CALCIUM\MAGNESIUM
  8. GENERIC VYTORIN [Concomitant]
  9. CITRUS BIOFLACONOIDS [Concomitant]
  10. HYDROCORTISONE. [Concomitant]
     Active Substance: HYDROCORTISONE
  11. FLUDROCORTISONE [Concomitant]
     Active Substance: FLUDROCORTISONE
  12. MYRBETRIQ [Concomitant]
     Active Substance: MIRABEGRON
  13. ZINC OXIDE (TOPICAL) [Concomitant]
  14. SPECTRAVITE MULTIVITAMIN + MINERAL FOR WOMEN OVER 50 [Concomitant]

REACTIONS (1)
  - Initial insomnia [None]

NARRATIVE: CASE EVENT DATE: 20180623
